FAERS Safety Report 4308933-1 (Version None)
Quarter: 2004Q1

REPORT INFORMATION
  Report Type: 
  Country: None (occurrence: None)
  Receive Date: 20040227
  Receipt Date: 20040216
  Transmission Date: 20041129
  Serious: Yes (Death)
  Sender: FDA-Public Use
  Company Number: FR-JNJFOC-20040203296

PATIENT
  Age: 58 Year
  Sex: Female

DRUGS (10)
  1. HALDOL [Suspect]
     Indication: PSYCHOTIC DISORDER
     Dosage: 15 MG,  IN 1 DAY, ORAL
     Route: 048
     Dates: start: 20031205, end: 20031209
  2. NOZINAN (LEVOMEPROMAZINE) [Suspect]
     Dosage: 300 MG,  IN 1 DAY, ORAL
     Route: 048
     Dates: start: 20030929, end: 20031209
  3. NEO-MERCAZOLE TAB [Suspect]
     Indication: DRUG USE FOR UNKNOWN INDICATION
     Dosage: 5 MG,  IN 1 DAY, ORAL
     Route: 048
     Dates: start: 20030522, end: 20031209
  4. MYOLASTAN (TETRAZEPAM) [Concomitant]
  5. LEPTICUR (TROPATEPINE HYDROCHLORIDE) [Concomitant]
  6. SULFARLEM (ANETHOLE TRITHIONE) [Concomitant]
  7. FORLAX (MACROGEL) [Concomitant]
  8. LIORESAL [Concomitant]
  9. SURBRONC (AMBROXOL HYDROCHLORIDE) [Concomitant]
  10. POTASSIUM SIROP (POTASSIUM) [Concomitant]

REACTIONS (2)
  - CARDIO-RESPIRATORY ARREST [None]
  - DRUG INTERACTION [None]
